FAERS Safety Report 21124089 (Version 1)
Quarter: 2022Q3

REPORT INFORMATION
  Report Type: Report from Study
  Country: US (occurrence: US)
  Receive Date: 20220725
  Receipt Date: 20220725
  Transmission Date: 20221027
  Serious: Yes (Hospitalization)
  Sender: FDA-Public Use
  Company Number: US-BIOVITRUM-2022US08898

PATIENT
  Sex: Female

DRUGS (24)
  1. SYNAGIS [Suspect]
     Active Substance: PALIVIZUMAB
     Indication: Antiviral prophylaxis
     Dosage: 100MG/1ML
  2. FLUCONAZOLE [Concomitant]
     Active Substance: FLUCONAZOLE
     Dosage: LOW DOSE
  3. ASPIRIN [Concomitant]
     Active Substance: ASPIRIN
  4. ENALAPRIL MALEATE [Concomitant]
     Active Substance: ENALAPRIL MALEATE
  5. CHILDR RENVELA [Concomitant]
  6. CYCLOSPORINE [Concomitant]
     Active Substance: CYCLOSPORINE
  7. PREDNISOLONE [Concomitant]
     Active Substance: PREDNISOLONE
  8. AZITHROMYCIN [Concomitant]
     Active Substance: AZITHROMYCIN
  9. CALCITRIOL [Concomitant]
     Active Substance: CALCITRIOL
  10. PREVACID [Concomitant]
     Active Substance: LANSOPRAZOLE
  11. BACTRIM [Concomitant]
     Active Substance: SULFAMETHOXAZOLE\TRIMETHOPRIM
  12. LEVOTHYROXINE SODIUM [Concomitant]
     Active Substance: LEVOTHYROXINE SODIUM
  13. TYLENOL [Concomitant]
     Active Substance: ACETAMINOPHEN
  14. HYDROCHLOROTHIAZIDE [Concomitant]
     Active Substance: HYDROCHLOROTHIAZIDE
  15. CALCIUM CITRATE [Concomitant]
     Active Substance: CALCIUM CITRATE
  16. DS NYSTATIN [Concomitant]
  17. MOISTURIZING GLYCERIN INFANTS [Concomitant]
  18. PEPCID [Concomitant]
     Active Substance: FAMOTIDINE
  19. HIZENTRA [Concomitant]
     Active Substance: HUMAN IMMUNOGLOBULIN G
  20. HYDROCORTISONE [Concomitant]
     Active Substance: HYDROCORTISONE
  21. POTASSIUM CITRATE [Concomitant]
     Active Substance: POTASSIUM CITRATE
  22. CITRIC ACID [Concomitant]
     Active Substance: CITRIC ACID MONOHYDRATE
  23. CETAPHIL DAILY FACIAL MOISTURIZER WITH SUNCREEN SPF 50 [Concomitant]
     Active Substance: OCTINOXATE\OCTISALATE\OCTOCRYLENE\OXYBENZONE\TITANIUM DIOXIDE
  24. BUDESONIDE [Concomitant]
     Active Substance: BUDESONIDE

REACTIONS (1)
  - Hypocalcaemia [Unknown]
